FAERS Safety Report 4323119-2 (Version None)
Quarter: 2004Q1

REPORT INFORMATION
  Report Type: 
  Country: None (occurrence: None)
  Receive Date: 20040322
  Receipt Date: 20040226
  Transmission Date: 20041129
  Serious: Yes (Other)
  Sender: FDA-Public Use
  Company Number: 001#1#2004-00040

PATIENT
  Age: 59 Year
  Sex: Male

DRUGS (1)
  1. ISOKET-RETARD-20 (ISOSORBIDE DINITRATE) [Suspect]
     Dosage: 1.40 MG (20MG 2 IN 1 DAY(S)) ORAL
     Route: 048
     Dates: start: 20031101

REACTIONS (4)
  - CARDIAC DISORDER [None]
  - CONDITION AGGRAVATED [None]
  - DRUG INEFFECTIVE [None]
  - DYSGEUSIA [None]
